FAERS Safety Report 17003942 (Version 1)
Quarter: 2019Q4

REPORT INFORMATION
  Report Type: Spontaneous
  Country: US (occurrence: US)
  Receive Date: 20191107
  Receipt Date: 20191107
  Transmission Date: 20200122
  Serious: Yes (Other)
  Sender: FDA-Public Use
  Company Number: US-PFIZER INC-2019476064

PATIENT
  Age: 54 Year

DRUGS (2)
  1. NICOTROL [Suspect]
     Active Substance: NICOTINE
     Dosage: UNK
  2. LYRICA [Suspect]
     Active Substance: PREGABALIN
     Dosage: UNK

REACTIONS (6)
  - Insomnia [Unknown]
  - Crying [Unknown]
  - Tobacco user [Unknown]
  - Fatigue [Unknown]
  - Suicidal ideation [Unknown]
  - Stress [Unknown]
